FAERS Safety Report 18581760 (Version 1)
Quarter: 2020Q4

REPORT INFORMATION
  Report Type: Spontaneous
  Country: US (occurrence: US)
  Receive Date: 20201204
  Receipt Date: 20201204
  Transmission Date: 20210114
  Serious: Yes (Other)
  Sender: FDA-Public Use
  Company Number: None

PATIENT
  Age: 53 Year
  Sex: Female
  Weight: 73.35 kg

DRUGS (4)
  1. IBUPROFEN. [Concomitant]
     Active Substance: IBUPROFEN
  2. PIQRAY [Suspect]
     Active Substance: ALPELISIB
     Indication: BREAST CANCER
     Route: 048
     Dates: start: 20201103, end: 20201111
  3. FASLODEX [Concomitant]
     Active Substance: FULVESTRANT
  4. MEGESTROL [Concomitant]
     Active Substance: MEGESTROL

REACTIONS (4)
  - Decreased appetite [None]
  - Vaginal haemorrhage [None]
  - Hyperglycaemia [None]
  - Stomatitis [None]

NARRATIVE: CASE EVENT DATE: 20201104
